FAERS Safety Report 4322050-6 (Version None)
Quarter: 2004Q1

REPORT INFORMATION
  Report Type: 
  Country: None (occurrence: None)
  Receive Date: 20040319
  Receipt Date: 20040311
  Transmission Date: 20041129
  Serious: No
  Sender: FDA-Public Use
  Company Number: 04-000172

PATIENT
  Age: 61 Year
  Sex: Female
  Weight: 65.8 kg

DRUGS (6)
  1. FEMRING [Suspect]
     Indication: HORMONE REPLACEMENT THERAPY
     Dosage: 0.05 MG, QD, VAGINAL
     Route: 067
     Dates: start: 20040303, end: 20040308
  2. ESTROTEST (BENZYL ALCOHOL, ESTRADIOL UNDECYLATE, TESTOSTERONE PHENYLPR [Concomitant]
  3. TOPROL (METOPROLOL SUCCINATE), 50 MG [Concomitant]
  4. VAGIFEM TABLET [Concomitant]
  5. MULTIVITAMIN [Concomitant]
  6. CALCIUM (CALCIUM) [Concomitant]

REACTIONS (1)
  - EPISTAXIS [None]
